FAERS Safety Report 16626209 (Version 1)
Quarter: 2019Q3

REPORT INFORMATION
  Report Type: Spontaneous
  Country: DE (occurrence: DE)
  Receive Date: 20190724
  Receipt Date: 20190724
  Transmission Date: 20191004
  Serious: Yes (Hospitalization)
  Sender: FDA-Public Use
  Company Number: DE-SA-2019SA193901

PATIENT
  Age: 64 Year
  Sex: Female

DRUGS (9)
  1. MTX HEXAL [Suspect]
     Active Substance: METHOTREXATE SODIUM
     Dosage: 15 MG FOR A WEEK
  2. FOLSAEURE [Concomitant]
     Active Substance: FOLIC ACID
     Dosage: UNK, QD (NK MG, 1-0-0-0)
  3. LEFLUNOMIDE. [Suspect]
     Active Substance: LEFLUNOMIDE
     Dosage: 20 MG, QD FOR A WEEK
  4. PREDNISOLONE. [Concomitant]
     Active Substance: PREDNISOLONE
     Dosage: 2.5 MG, QD
  5. NIFEDIPIN [Concomitant]
     Active Substance: NIFEDIPINE
     Dosage: 10 MG, PRN
  6. PANTOPRAZOL [PANTOPRAZOLE] [Concomitant]
     Active Substance: PANTOPRAZOLE
     Dosage: 40 MG, QD
  7. EBRANTIL [URAPIDIL] [Concomitant]
     Active Substance: URAPIDIL
     Dosage: 30 MG (30 MG, 1-0-2-0)
  8. CANDESARTAN CILEXETIL/HYDROCHLOORTHIAZIDE [Concomitant]
     Active Substance: CANDESARTAN CILEXETIL\HYDROCHLOROTHIAZIDE
     Dosage: UNK UNK, QD (32|12.5 MG, 1-0-0-0)
  9. LERCANIDIPINE [LERCANIDIPINE HYDROCHLORIDE] [Concomitant]
     Active Substance: LERCANIDIPINE HYDROCHLORIDE
     Dosage: 0.5 DF, BID (20 MG, 0.5-0-0.5-0)

REACTIONS (1)
  - Hypertension [Unknown]

NARRATIVE: CASE EVENT DATE: 20180210
